FAERS Safety Report 7627191-3 (Version None)
Quarter: 2011Q3

REPORT INFORMATION
  Report Type: 
  Country: None (occurrence: None)
  Receive Date: 20110721
  Receipt Date: 20110714
  Transmission Date: 20111222
  Serious: Yes (Other)
  Sender: FDA-Public Use
  Company Number: JP-PFIZER INC-2011107267

PATIENT
  Age: 9 Year
  Sex: Male

DRUGS (5)
  1. LOSARTAN POTASSIUM [Suspect]
     Indication: HYPERTENSION
     Dosage: 12.5 MG/DAY
     Dates: start: 20090622
  2. LOSARTAN POTASSIUM [Suspect]
     Dosage: 0.7 DF, UNK
     Dates: start: 20100629
  3. GENOTROPIN [Suspect]
     Indication: GROWTH HORMONE DEFICIENCY
     Dosage: 0.6 MG, 1X/DAY
     Route: 058
     Dates: start: 20090903, end: 20100629
  4. GENOTROPIN [Suspect]
     Indication: DWARFISM
     Dosage: 0.6 MG, 1X/DAY
     Dates: start: 20110426
  5. LOSARTAN POTASSIUM [Suspect]
     Dosage: 25 MG, DAILY
     Dates: start: 20100713

REACTIONS (1)
  - HYPERTENSION [None]
